FAERS Safety Report 25013172 (Version 1)
Quarter: 2025Q1

REPORT INFORMATION
  Report Type: Spontaneous
  Country: US (occurrence: None)
  Receive Date: 20250225
  Receipt Date: 20250225
  Transmission Date: 20250409
  Serious: No
  Sender: FDA-CTU
  Company Number: None

PATIENT

DRUGS (3)
  1. VISTARIL [Suspect]
     Active Substance: HYDROXYZINE PAMOATE
  2. TRAZODONE [Suspect]
     Active Substance: TRAZODONE HYDROCHLORIDE
  3. REMERON [Suspect]
     Active Substance: MIRTAZAPINE

REACTIONS (1)
  - Drug ineffective [None]
